FAERS Safety Report 7901157-8 (Version None)
Quarter: 2011Q4

REPORT INFORMATION
  Report Type: 
  Country: None (occurrence: None)
  Receive Date: 20111108
  Receipt Date: 20111103
  Transmission Date: 20120403
  Serious: Yes (Hospitalization)
  Sender: FDA-Public Use
  Company Number: BY-PFIZER INC-2011236010

PATIENT
  Age: 25 Year
  Sex: Male

DRUGS (9)
  1. DE-NOL [Concomitant]
     Dosage: 2 DF, 2X/DAY
  2. LASIX [Concomitant]
  3. ZYVOX [Suspect]
     Indication: SEPSIS
     Dosage: 600 MG, 2X/DAY
     Route: 042
     Dates: start: 20110803, end: 20110830
  4. MEROPENEM [Concomitant]
     Dosage: 1.5 G, 2X/DAY
  5. BISEPTOL [Concomitant]
     Dosage: 480 MG TWICE PER DAY, EVERY OTHER DAY
  6. CANCIDAS [Concomitant]
     Dosage: 50 MG PER DAY
  7. COLISTIN [Concomitant]
     Dosage: 1,0 DOSE UNITS UNKNOWN TWICE DAILY
  8. VIROLEX [Concomitant]
     Dosage: 500 MG, 2X/DAY
  9. ZYVOX [Suspect]
     Dosage: 600 MG, 2X/DAY
     Route: 042
     Dates: start: 20110905, end: 20110909

REACTIONS (2)
  - CONDITION AGGRAVATED [None]
  - PATHOGEN RESISTANCE [None]
